FAERS Safety Report 4424188-1 (Version None)
Quarter: 2004Q3

REPORT INFORMATION
  Report Type: 
  Country: None (occurrence: None)
  Receive Date: 20040809
  Receipt Date: 20040727
  Transmission Date: 20050211
  Serious: Yes (Hospitalization)
  Sender: FDA-Public Use
  Company Number: 2004044357

PATIENT
  Age: 67 Year
  Sex: Female

DRUGS (3)
  1. CITALOR (ATORVASTATIN) [Suspect]
     Indication: DYSLIPIDAEMIA
     Dosage: 10 MG (10 MG, 1 IN 1 D),  ORAL
     Route: 048
     Dates: start: 19990801
  2. TELMISARTAN (TELMISARTAN) [Concomitant]
  3. BUFFERIN (ACETYLSALICYLIC ACID, ALUMINIUM GLYCINATE) [Concomitant]

REACTIONS (1)
  - ARTHRALGIA [None]
